FAERS Safety Report 19120788 (Version 4)
Quarter: 2021Q3

REPORT INFORMATION
  Report Type: Spontaneous
  Country: AU (occurrence: AU)
  Receive Date: 20210412
  Receipt Date: 20210827
  Transmission Date: 20211014
  Serious: Yes (Life-Threatening, Other)
  Sender: FDA-Public Use
  Company Number: NVSC2021AU080343

PATIENT
  Age: 9 Year
  Sex: Male
  Weight: 50 kg

DRUGS (4)
  1. ARZERRA [Suspect]
     Active Substance: OFATUMUMAB
     Indication: NEPHROTIC SYNDROME
     Dosage: 230 MG, ONCE/SINGLE
     Route: 042
     Dates: start: 20210128, end: 20210128
  2. PARACETAMOL [Concomitant]
     Active Substance: ACETAMINOPHEN
     Indication: PREMEDICATION
     Dosage: 15 MG/KG
     Route: 048
     Dates: start: 20210128, end: 20210128
  3. PROMETHAZINE [Concomitant]
     Active Substance: PROMETHAZINE HYDROCHLORIDE
     Indication: PREMEDICATION
     Dosage: 0.24 MG/KG
     Route: 042
     Dates: start: 20210128, end: 20210128
  4. METHYLPREDNISOLON [Concomitant]
     Active Substance: METHYLPREDNISOLONE
     Indication: PREMEDICATION
     Dosage: 2 MG/KG
     Route: 042
     Dates: start: 20210128, end: 20210128

REACTIONS (10)
  - Asthma [Unknown]
  - Urticaria [Recovered/Resolved]
  - Aggression [Not Recovered/Not Resolved]
  - Wheezing [Recovered/Resolved]
  - Muscle spasms [Unknown]
  - Lip swelling [Recovered/Resolved]
  - Oedema [Unknown]
  - Product use issue [Unknown]
  - Rash [Recovered/Resolved]
  - Product use in unapproved indication [Unknown]

NARRATIVE: CASE EVENT DATE: 20210128
